FAERS Safety Report 13331234 (Version 14)
Quarter: 2022Q3

REPORT INFORMATION
  Report Type: Report from Study
  Country: JP (occurrence: JP)
  Receive Date: 20170314
  Receipt Date: 20220725
  Transmission Date: 20221027
  Serious: Yes (Life-Threatening, Hospitalization, Other)
  Sender: FDA-Public Use
  Company Number: JP-BRISTOL-MYERS SQUIBB COMPANY-BMS-2017-014690

PATIENT
  Age: 80 Year
  Sex: Female
  Weight: 54.2 kg

DRUGS (9)
  1. IPILIMUMAB [Suspect]
     Active Substance: IPILIMUMAB
     Indication: Malignant melanoma
     Route: 041
     Dates: start: 20170125, end: 20170125
  2. OPDIVO [Suspect]
     Active Substance: NIVOLUMAB
     Indication: Malignant melanoma
     Route: 041
     Dates: start: 20151021, end: 20161221
  3. AMLODIPINE [Concomitant]
     Active Substance: AMLODIPINE BESYLATE
     Indication: Product used for unknown indication
     Route: 065
  4. PRAVASTATIN SODIUM [Concomitant]
     Active Substance: PRAVASTATIN SODIUM
     Indication: Product used for unknown indication
     Route: 065
  5. MIYA-BM [Concomitant]
     Active Substance: CLOSTRIDIUM BUTYRICUM SPORES STRAIN M-55
     Indication: Product used for unknown indication
     Route: 065
  6. LULICONAZOLE [Concomitant]
     Active Substance: LULICONAZOLE
     Indication: Product used for unknown indication
     Route: 065
  7. BETAMETHASONE DIPROPIONATE [Concomitant]
     Active Substance: BETAMETHASONE DIPROPIONATE
     Indication: Product used for unknown indication
     Route: 065
  8. RESCULA [Concomitant]
     Active Substance: UNOPROSTONE ISOPROPYL
     Indication: Product used for unknown indication
     Route: 031
  9. POLARAMINE [Concomitant]
     Active Substance: DEXCHLORPHENIRAMINE MALEATE
     Indication: Product used for unknown indication
     Route: 048

REACTIONS (10)
  - Fulminant type 1 diabetes mellitus [Not Recovered/Not Resolved]
  - Thrombocytopenia [Recovered/Resolved]
  - Prescribed underdose [Unknown]
  - Inappropriate schedule of product administration [Unknown]
  - Alanine aminotransferase increased [Recovered/Resolved]
  - Aspartate aminotransferase increased [Recovered/Resolved]
  - Gamma-glutamyltransferase increased [Recovered/Resolved]
  - KL-6 increased [Recovered/Resolved]
  - Anti-insulin antibody positive [Recovered/Resolved]
  - Interleukin-2 receptor increased [Recovered/Resolved]

NARRATIVE: CASE EVENT DATE: 20151028
